FAERS Safety Report 8538964-7 (Version None)
Quarter: 2012Q3

REPORT INFORMATION
  Report Type: 
  Country: None (occurrence: None)
  Receive Date: 20120726
  Receipt Date: 20120719
  Transmission Date: 20120928
  Serious: Yes (Disabling, Other)
  Sender: FDA-Public Use
  Company Number: PHEH2012US014332

PATIENT

DRUGS (1)
  1. RECLAST [Suspect]
     Indication: OSTEOPOROSIS
     Dosage: 4 MG, PER YEAR
     Route: 042

REACTIONS (3)
  - INCORRECT DOSE ADMINISTERED [None]
  - BONE PAIN [None]
  - MUSCULAR WEAKNESS [None]
